FAERS Safety Report 7219870-7 (Version None)
Quarter: 2011Q1

REPORT INFORMATION
  Report Type: 
  Country: None (occurrence: None)
  Receive Date: 20110111
  Receipt Date: 20101224
  Transmission Date: 20110831
  Serious: Yes (Other)
  Sender: FDA-Public Use
  Company Number: JP-AMGEN-KDC441736

PATIENT

DRUGS (14)
  1. CORTICOSTEROIDS [Concomitant]
     Indication: PROPHYLAXIS
     Route: 065
  2. NAIXAN [Concomitant]
     Route: 048
  3. ANTIHISTAMINES [Concomitant]
     Indication: PROPHYLAXIS
     Route: 065
  4. SIGMART [Concomitant]
     Route: 048
  5. FLUOROURACIL [Suspect]
     Route: 041
     Dates: start: 20100701, end: 20100715
  6. CALCIUM CHANNEL BLOCKERS [Concomitant]
     Dosage: UNK UNK, UNK
     Route: 065
  7. NORVASC [Concomitant]
     Route: 048
  8. PANITUMUMAB [Suspect]
     Dosage: 6 MG/KG, Q2WK
     Route: 041
     Dates: start: 20100701
  9. DIOVAN [Concomitant]
     Route: 048
  10. MARZULENE S [Concomitant]
     Route: 048
  11. CALCIUM LEVOFOLINATE [Suspect]
     Indication: COLORECTAL CANCER
     Route: 041
     Dates: start: 20100701, end: 20100715
  12. IRINOTECAN HYDROCHLORIDE [Suspect]
     Indication: COLORECTAL CANCER
     Route: 041
     Dates: start: 20100701, end: 20100715
  13. BUFFERIN [Concomitant]
     Route: 048
  14. FLUOROURACIL [Suspect]
     Indication: COLORECTAL CANCER
     Route: 040
     Dates: start: 20100701, end: 20100715

REACTIONS (6)
  - BONE MARROW FAILURE [None]
  - MYOCARDIAL INFARCTION [None]
  - DRY SKIN [None]
  - PARONYCHIA [None]
  - STOMATITIS [None]
  - DERMATITIS ACNEIFORM [None]
